FAERS Safety Report 6812705-3 (Version None)
Quarter: 2010Q3

REPORT INFORMATION
  Report Type: 
  Country: None (occurrence: None)
  Receive Date: 20100701
  Receipt Date: 20100618
  Transmission Date: 20110219
  Serious: Yes (Death)
  Sender: FDA-Public Use
  Company Number: A0790800A

PATIENT
  Age: 52 Year
  Sex: Male

DRUGS (2)
  1. AVANDAMET [Suspect]
     Indication: DIABETES MELLITUS
     Dosage: 1MG TWICE PER DAY
     Route: 048
     Dates: start: 20040401, end: 20060501
  2. AVANDIA [Suspect]
     Indication: DIABETES MELLITUS
     Dosage: 4MG PER DAY
     Route: 048
     Dates: start: 20040701, end: 20070801

REACTIONS (3)
  - ARRHYTHMIA [None]
  - HYPERTENSION [None]
  - MYOCARDIAL INFARCTION [None]
